FAERS Safety Report 6441638-X (Version None)
Quarter: 2009Q4

REPORT INFORMATION
  Report Type: 
  Country: None (occurrence: None)
  Receive Date: 20091113
  Receipt Date: 20091113
  Transmission Date: 20100525
  Serious: No
  Sender: FDA-Public Use
  Company Number: None

PATIENT
  Age: 56 Year
  Sex: Male
  Weight: 68.0396 kg

DRUGS (2)
  1. PROTONIX [Suspect]
     Indication: EROSIVE OESOPHAGITIS
     Dosage: 1 PER DAY PO
     Route: 048
     Dates: start: 20000201, end: 20090911
  2. PROTONIX [Suspect]
     Indication: GASTROOESOPHAGEAL REFLUX DISEASE
     Dosage: 1 PER DAY PO
     Route: 048
     Dates: start: 20000201, end: 20090911

REACTIONS (6)
  - ARTHRALGIA [None]
  - BLINDNESS [None]
  - DEPRESSION [None]
  - FATIGUE [None]
  - MYALGIA [None]
  - OPTIC ISCHAEMIC NEUROPATHY [None]
